FAERS Safety Report 23779846 (Version 1)
Quarter: 2024Q2

REPORT INFORMATION
  Report Type: Spontaneous
  Country: US (occurrence: None)
  Receive Date: 20240424
  Receipt Date: 20240424
  Transmission Date: 20240716
  Serious: No
  Sender: FDA-Public Use
  Company Number: None

PATIENT
  Age: 68 Year
  Sex: Male
  Weight: 25.7 kg

DRUGS (1)
  1. MEMANTINE [Suspect]
     Active Substance: MEMANTINE
     Indication: Hepatocellular carcinoma
     Dosage: FREQUENCY : DAILY;?
     Route: 048
     Dates: start: 20240205, end: 20240226

REACTIONS (1)
  - Bleeding varicose vein [None]

NARRATIVE: CASE EVENT DATE: 20240312
